FAERS Safety Report 10596590 (Version 2)
Quarter: 2014Q4

REPORT INFORMATION
  Report Type: Spontaneous
  Country: SE (occurrence: SE)
  Receive Date: 20141120
  Receipt Date: 20141222
  Transmission Date: 20150529
  Serious: Yes (Other)
  Sender: FDA-Public Use
  Company Number: SE-ACTAVIS-2014-24875

PATIENT
  Age: 38 Year
  Sex: Female

DRUGS (1)
  1. TRAMADOL ACTAVIS [Suspect]
     Active Substance: TRAMADOL
     Indication: EHLERS-DANLOS SYNDROME
     Dosage: UNKNOWN
     Route: 065

REACTIONS (1)
  - Epilepsy [Unknown]

NARRATIVE: CASE EVENT DATE: 20140819
